FAERS Safety Report 5663250-2 (Version None)
Quarter: 2008Q1

REPORT INFORMATION
  Report Type: 
  Country: None (occurrence: None)
  Receive Date: 20080313
  Receipt Date: 20070823
  Transmission Date: 20080703
  Serious: Yes (Hospitalization, Disabling, Other)
  Sender: FDA-Public Use
  Company Number: NZ-GENENTECH-247101

PATIENT

DRUGS (1)
  1. AVASTIN [Suspect]
     Indication: OCULAR NEOPLASM
     Dosage: 3.75 MG, UNKNOWN
     Route: 031
     Dates: start: 20070704, end: 20070704

REACTIONS (8)
  - BLOOD PRESSURE DECREASED [None]
  - CHEST PAIN [None]
  - CHILLS [None]
  - COUGH [None]
  - FATIGUE [None]
  - HYPOAESTHESIA [None]
  - PHARYNGOLARYNGEAL PAIN [None]
  - VAGINAL HAEMORRHAGE [None]
